FAERS Safety Report 4375215-1 (Version None)
Quarter: 2004Q2

REPORT INFORMATION
  Report Type: 
  Country: None (occurrence: None)
  Receive Date: 20040610
  Receipt Date: 20040601
  Transmission Date: 20050107
  Serious: Yes (Death, Other)
  Sender: FDA-Public Use
  Company Number: PHBS2004DE07303

PATIENT
  Age: 41 Year
  Sex: Male

DRUGS (5)
  1. CYCLOSPORINE [Suspect]
     Indication: APLASIA
     Dates: start: 20000101, end: 20001201
  2. PREDNISONE [Concomitant]
     Dosage: 100 MG/DAY
     Dates: start: 20000101
  3. PREDNISONE [Concomitant]
     Dosage: 30 MG/DAY
     Dates: start: 20000101
  4. ATG [Concomitant]
     Dates: start: 20001101
  5. PLATELETS [Concomitant]

REACTIONS (8)
  - BLOOD CREATININE INCREASED [None]
  - BONE MARROW TRANSPLANT [None]
  - MULTI-ORGAN FAILURE [None]
  - MYELODYSPLASTIC SYNDROME [None]
  - PANCREATITIS ACUTE [None]
  - PNEUMONIA [None]
  - RENAL FAILURE [None]
  - SEPTIC SHOCK [None]
